FAERS Safety Report 8864449 (Version 1)
Quarter: 2012Q4

REPORT INFORMATION
  Report Type: 
  Country: CN (occurrence: CN)
  Receive Date: 20121024
  Receipt Date: 20121024
  Transmission Date: 20130627
  Serious: Yes (Other)
  Sender: FDA-Public Use
  Company Number: CN-ROCHE-1148119

PATIENT

DRUGS (1)
  1. RITUXIMAB [Suspect]
     Indication: DIFFUSE LARGE B-CELL LYMPHOMA
     Dosage: on day 0 or 1
     Route: 065

REACTIONS (15)
  - Gastrointestinal haemorrhage [Unknown]
  - Neurotoxicity [Unknown]
  - Anaemia [Unknown]
  - Thrombocytopenia [Unknown]
  - Nausea [Unknown]
  - Vomiting [Unknown]
  - Fatigue [Unknown]
  - Stomatitis [Unknown]
  - Neutropenia [Unknown]
  - Febrile neutropenia [Unknown]
  - Cardiac disorder [Unknown]
  - Infection [Unknown]
  - Gastrointestinal perforation [Unknown]
  - Dysphagia [Unknown]
  - Diarrhoea [Unknown]
